FAERS Safety Report 9871088 (Version 1)
Quarter: 2014Q1

REPORT INFORMATION
  Report Type: Spontaneous
  Country: US (occurrence: US)
  Receive Date: 20140205
  Receipt Date: 20140205
  Transmission Date: 20141002
  Serious: No
  Sender: FDA-Public Use
  Company Number: US-GILEAD-2013-0073461

PATIENT
  Age: 52 Year
  Sex: Male

DRUGS (1)
  1. STRIBILD [Suspect]
     Indication: PRODUCT USED FOR UNKNOWN INDICATION
     Dosage: UNK
     Dates: start: 201304

REACTIONS (4)
  - Anxiety [Unknown]
  - Back pain [Unknown]
  - Feeling abnormal [Unknown]
  - Hypersensitivity [Unknown]
